FAERS Safety Report 13598803 (Version 5)
Quarter: 2018Q1

REPORT INFORMATION
  Report Type: Spontaneous
  Country: JP (occurrence: JP)
  Receive Date: 20170531
  Receipt Date: 20180213
  Transmission Date: 20180508
  Serious: Yes (Other)
  Sender: FDA-Public Use
  Company Number: PHJP2017JP017453

PATIENT
  Sex: Female

DRUGS (1)
  1. ILARIS [Suspect]
     Active Substance: CANAKINUMAB
     Indication: FAMILIAL MEDITERRANEAN FEVER
     Dosage: UNK
     Route: 058

REACTIONS (6)
  - Arthritis [Unknown]
  - Herpes zoster [Recovering/Resolving]
  - Arthralgia [Unknown]
  - Pneumonia [Recovering/Resolving]
  - Pre-existing condition improved [Recovered/Resolved]
  - Therapeutic response unexpected [Unknown]
